FAERS Safety Report 9258849 (Version 1)
Quarter: 2013Q2

REPORT INFORMATION
  Report Type: Report from Study
  Country: US (occurrence: US)
  Receive Date: 20130426
  Receipt Date: 20130426
  Transmission Date: 20140414
  Serious: Yes (Other)
  Sender: FDA-Public Use
  Company Number: US-ABBOTT-13P-163-1080132-00

PATIENT
  Sex: Female
  Weight: 79.45 kg

DRUGS (5)
  1. HUMIRA [Suspect]
     Indication: CROHN^S DISEASE
     Dates: start: 2009, end: 2009
  2. HUMIRA [Suspect]
     Dates: start: 2009, end: 2009
  3. HUMIRA [Suspect]
     Dates: start: 2009
  4. HUMIRA [Suspect]
     Indication: CROHN^S DISEASE
  5. MULTIPLE MEDICATIONS [Concomitant]
     Indication: PRODUCT USED FOR UNKNOWN INDICATION

REACTIONS (5)
  - Intervertebral disc protrusion [Recovered/Resolved]
  - Neck pain [Recovered/Resolved]
  - Impaired healing [Recovered/Resolved]
  - Spinal cord compression [Recovered/Resolved]
  - Neck pain [Not Recovered/Not Resolved]
